FAERS Safety Report 7828444-6 (Version None)
Quarter: 2011Q4

REPORT INFORMATION
  Report Type: 
  Country: None (occurrence: None)
  Receive Date: 20111020
  Receipt Date: 20111013
  Transmission Date: 20120403
  Serious: Yes (Death, Other)
  Sender: FDA-Public Use
  Company Number: US-BAYER-200940583NA

PATIENT
  Age: 73 Year
  Sex: Male
  Weight: 79 kg

DRUGS (20)
  1. TRASYLOL [Suspect]
     Indication: CORONARY ARTERY BYPASS
     Dosage: 200 ML FOLLOWED BY 50 ML/HOUR FUSION.
     Route: 042
     Dates: start: 20071107, end: 20071107
  2. ACETAMINOPHEN [Concomitant]
     Route: 048
  3. SIMVASTATIN [Concomitant]
     Indication: HYPERLIPIDAEMIA
     Dosage: 80 MG ? TAB AT BEDTIME
     Route: 048
  4. ISOSORBIDE DINITRATE [Concomitant]
     Indication: ANGINA PECTORIS
     Dosage: 20 MG TWICE DAILY.
     Route: 048
  5. RED BLOOD CELLS [Concomitant]
     Dosage: 4 UNITS
     Route: 042
     Dates: start: 20071107
  6. HEPARIN [Concomitant]
     Dosage: 30000 UNITS INITIAL DOSE
     Route: 042
     Dates: start: 20071107
  7. PLAVIX [Concomitant]
     Indication: THROMBOSIS PROPHYLAXIS
     Dosage: 75 MG
     Route: 048
  8. LISINOPRIL [Concomitant]
     Indication: HYPERTENSION
     Dosage: 25/20 MG DAILY.
     Route: 048
  9. PROTAMINE SULFATE [Concomitant]
     Dosage: UNK
     Route: 042
     Dates: start: 20071107
  10. POTASSIUM [Concomitant]
     Dosage: 8 MEQ SAT DAILY
     Route: 048
  11. ALBUMIN (HUMAN) [Concomitant]
     Dosage: UNK
     Route: 042
     Dates: start: 20071107
  12. FENTANYL [Concomitant]
     Dosage: 100 MICORGRAM
     Route: 042
     Dates: start: 20071107
  13. TRASYLOL [Suspect]
     Indication: MITRAL VALVE REPAIR
     Dosage: 1 ML INITIAL TEST DOSE
     Route: 042
     Dates: start: 20071107, end: 20071107
  14. TENORMIN [Concomitant]
     Indication: HYPERTENSION
     Dosage: 50 MG
     Route: 048
  15. NITROSTAT [Concomitant]
     Indication: CHEST PAIN
     Dosage: 0.4 TAB
     Route: 060
  16. VANCOMYCIN HCL [Concomitant]
     Dosage: UNK
     Route: 042
     Dates: start: 20071107
  17. INSULIN [Concomitant]
     Indication: DIABETES MELLITUS
     Dosage: 35 UNITS IN MORNING; 25 UNITS IN EVENING,10 UNITS IN EVENING
     Route: 058
  18. CARDIZEM [Concomitant]
     Route: 048
  19. LASIX [Concomitant]
     Indication: DIURETIC THERAPY
     Dosage: 20 MG, QD
     Route: 048
  20. LASIX [Concomitant]
     Dosage: 30CC
     Route: 042
     Dates: start: 20071107

REACTIONS (13)
  - STRESS [None]
  - PAIN [None]
  - ANHEDONIA [None]
  - RENAL IMPAIRMENT [None]
  - UNEVALUABLE EVENT [None]
  - EMOTIONAL DISTRESS [None]
  - RENAL FAILURE [None]
  - RENAL INJURY [None]
  - FEAR [None]
  - DEATH [None]
  - MULTI-ORGAN FAILURE [None]
  - ANXIETY [None]
  - INJURY [None]
